FAERS Safety Report 5740971-4 (Version None)
Quarter: 2008Q2

REPORT INFORMATION
  Report Type: 
  Country: None (occurrence: None)
  Receive Date: 20080515
  Receipt Date: 20080206
  Transmission Date: 20081010
  Serious: No
  Sender: FDA-Public Use
  Company Number: WAES 0802USA01321

PATIENT
  Age: 40 Year
  Sex: Female

DRUGS (6)
  1. TAB ISENTRESS [Suspect]
     Indication: HIV INFECTION
     Dosage: 400 MG/BID/PO
     Route: 048
     Dates: start: 20080115
  2. BACTRIM DS [Concomitant]
  3. DIFLUCAN [Concomitant]
  4. EPZICOM [Concomitant]
  5. NORVIR [Concomitant]
  6. PREZISTA [Concomitant]

REACTIONS (4)
  - ACNE [None]
  - LYMPHADENOPATHY [None]
  - ORAL HERPES [None]
  - RASH VESICULAR [None]
